FAERS Safety Report 8592006-6 (Version None)
Quarter: 2012Q3

REPORT INFORMATION
  Report Type: 
  Country: None (occurrence: None)
  Receive Date: 20120814
  Receipt Date: 20120807
  Transmission Date: 20120928
  Serious: Yes (Other)
  Sender: FDA-Public Use
  Company Number: BR-BRISTOL-MYERS SQUIBB COMPANY-16849325

PATIENT
  Age: 69 Year
  Sex: Female
  Weight: 92 kg

DRUGS (5)
  1. CITALOPRAM [Concomitant]
     Indication: DEPRESSION
     Dosage: 1 TABS
     Route: 048
  2. TANDRILAX [Concomitant]
     Indication: HEADACHE
     Dosage: 1 TABS
     Route: 048
  3. ALPRAZOLAM [Concomitant]
     Indication: SLEEP DISORDER
     Dosage: 1 TAB
     Route: 048
     Dates: start: 20100101
  4. TANDRILAX [Concomitant]
     Indication: PAIN
     Dosage: 1 TABS
     Route: 048
  5. IRBESARTAN [Suspect]
     Indication: HYPERTENSION
     Dosage: 1 TAB EVERY MORNING,1 TABS
     Route: 048

REACTIONS (8)
  - UPPER LIMB FRACTURE [None]
  - NEUROPATHY PERIPHERAL [None]
  - PANCREATIC NEOPLASM [None]
  - ANEURYSM [None]
  - WEIGHT INCREASED [None]
  - SCAPULA FRACTURE [None]
  - RENAL DISORDER [None]
  - BRAIN NEOPLASM [None]
